FAERS Safety Report 7931870-8 (Version None)
Quarter: 2011Q4

REPORT INFORMATION
  Report Type: 
  Country: None (occurrence: None)
  Receive Date: 20111121
  Receipt Date: 20111114
  Transmission Date: 20120403
  Serious: No
  Sender: FDA-Public Use
  Company Number: US-BAYER-2011-110291

PATIENT
  Sex: Female

DRUGS (1)
  1. MIRENA [Suspect]
     Indication: CONTRACEPTION
     Dosage: 20 MCG/24HR, CONT
     Dates: start: 20090101

REACTIONS (5)
  - MENORRHAGIA [None]
  - MENSTRUAL DISORDER [None]
  - ABDOMINAL PAIN [None]
  - HYPOMENORRHOEA [None]
  - MEDICAL DEVICE COMPLICATION [None]
